FAERS Safety Report 21873676 (Version 1)
Quarter: 2023Q1

REPORT INFORMATION
  Report Type: Spontaneous
  Country: US (occurrence: None)
  Receive Date: 20230116
  Receipt Date: 20230116
  Transmission Date: 20230418
  Serious: No
  Sender: FDA-Public Use
  Company Number: None

PATIENT
  Age: 7 Week
  Sex: Male
  Weight: 5.03 kg

DRUGS (1)
  1. VALGANCICLOVIR [Suspect]
     Active Substance: VALGANCICLOVIR
     Dosage: FREQUENCY : EVERY 12 HOURS;?
     Route: 048

REACTIONS (2)
  - Constipation [None]
  - Irritability [None]

NARRATIVE: CASE EVENT DATE: 20230116
